FAERS Safety Report 5427646-6 (Version None)
Quarter: 2007Q3

REPORT INFORMATION
  Report Type: 
  Country: None (occurrence: None)
  Receive Date: 20070828
  Receipt Date: 20070821
  Transmission Date: 20080115
  Serious: Yes (Other)
  Sender: FDA-Public Use
  Company Number: B0483125A

PATIENT
  Age: 29 Year
  Sex: Female

DRUGS (2)
  1. SENSODYNE-F [Suspect]
     Indication: DRUG USE FOR UNKNOWN INDICATION
     Dates: start: 20070724, end: 20070729
  2. DIANETTE [Concomitant]

REACTIONS (4)
  - DYSGEUSIA [None]
  - GINGIVAL ATROPHY [None]
  - GINGIVAL PAIN [None]
  - SENSITIVITY OF TEETH [None]
